FAERS Safety Report 7710248-6 (Version None)
Quarter: 2011Q3

REPORT INFORMATION
  Report Type: 
  Country: None (occurrence: None)
  Receive Date: 20110825
  Receipt Date: 20110824
  Transmission Date: 20111222
  Serious: Yes (Hospitalization)
  Sender: FDA-Public Use
  Company Number: JP-EISAI INC-E2020-09632-CLI-JP

PATIENT
  Sex: Female
  Weight: 44 kg

DRUGS (14)
  1. DONEPEZIL/PLACEBO [Suspect]
     Indication: PARKINSON'S DISEASE
     Dosage: DOUBLE BLIND
     Route: 048
     Dates: start: 20110603, end: 20110609
  2. DOPS (SELEGILINE HYDROCHLORIDE) [Concomitant]
     Indication: PARKINSON'S DISEASE
     Route: 048
  3. MENESIT (LEVODOPA_CARBIDOPA HYDRATE) [Concomitant]
     Indication: PARKINSON'S DISEASE
     Route: 048
     Dates: start: 20110610
  4. MAGMITT (MAGNESIUM OXIDE) [Concomitant]
     Indication: INSOMNIA
     Route: 048
  5. PRAVASTATIN [Concomitant]
     Route: 048
  6. ALLEGRA [Concomitant]
     Dosage: 60 MG
     Route: 048
     Dates: start: 20110707
  7. SOFTSANTEAR (POTASSIUM CHLORIDE/SODIUM CHLORIDE) [Concomitant]
     Indication: DRY EYE
     Route: 031
  8. BI_SIFROL (PRAMIPEXOLE HYDROCHLORIDE HYDRATE) [Concomitant]
     Indication: PARKINSON'S DISEASE
     Route: 048
     Dates: start: 20110708
  9. LENDORMIN D (BROTIZOLAM) [Concomitant]
     Indication: INSOMNIA
     Route: 048
  10. FP-OD (SELEGILINE HYDROCHLORIDE) [Concomitant]
     Route: 048
     Dates: start: 20110708
  11. THYRADIN S (LEVOTHYROXINE SODIUM HYDRATE) [Concomitant]
     Indication: PARKINSON'S DISEASE
     Route: 048
  12. NEW LECICARBON SUPP (SODIUM BICARBONATE) [Concomitant]
     Indication: CONSTIPATION
     Route: 054
  13. LORAZEPAM [Concomitant]
     Indication: PARKINSON'S DISEASE
     Route: 048
  14. DONEPEZIL/PLACEBO [Suspect]
     Dosage: DOUBLE BLIND
     Route: 048
     Dates: start: 20110610, end: 20110823

REACTIONS (1)
  - BREAST CANCER [None]
